FAERS Safety Report 8098400-4 (Version None)
Quarter: 2012Q1

REPORT INFORMATION
  Report Type: 
  Country: None (occurrence: None)
  Receive Date: 20120131
  Receipt Date: 20120120
  Transmission Date: 20120608
  Serious: Yes (Hospitalization)
  Sender: FDA-Public Use
  Company Number: FR-MERCK-1201USA03468

PATIENT
  Age: 85 Year
  Sex: Male

DRUGS (9)
  1. XALATAN [Concomitant]
     Route: 065
  2. ACETAMINOPHEN [Concomitant]
     Route: 065
  3. NEXIUM [Suspect]
     Route: 048
     Dates: start: 20101012, end: 20101130
  4. IMOVANE [Concomitant]
     Route: 065
  5. PRETERAX (INDAPAMIDE (+) PERINDOPRIL ARGININE) [Concomitant]
     Route: 048
     Dates: end: 20101130
  6. ESCITALOPRAM OXALATE [Concomitant]
     Route: 065
  7. PREVISCAN [Suspect]
     Route: 048
     Dates: start: 20101012, end: 20101130
  8. LEXOMIL [Concomitant]
     Route: 065
  9. ZETIA [Suspect]
     Route: 048
     Dates: start: 20101012, end: 20101202

REACTIONS (3)
  - NEPHRITIS ALLERGIC [None]
  - TUBULOINTERSTITIAL NEPHRITIS [None]
  - RENAL FAILURE ACUTE [None]
